FAERS Safety Report 5899350-1 (Version None)
Quarter: 2008Q3

REPORT INFORMATION
  Report Type: 
  Country: None (occurrence: None)
  Receive Date: 20080924
  Receipt Date: 20080919
  Transmission Date: 20090109
  Serious: Yes (Death, Hospitalization)
  Sender: FDA-Public Use
  Company Number: 2008BI020608

PATIENT
  Sex: Female

DRUGS (1)
  1. TYSABRI [Suspect]
     Indication: MULTIPLE SCLEROSIS
     Dosage: 300 MG; QM; IV
     Route: 042
     Dates: start: 20080604, end: 20080710

REACTIONS (4)
  - COMA [None]
  - ENCEPHALOPATHY [None]
  - RENAL FAILURE ACUTE [None]
  - RESPIRATORY FAILURE [None]
